FAERS Safety Report 7391985-2 (Version None)
Quarter: 2011Q2

REPORT INFORMATION
  Report Type: 
  Country: None (occurrence: None)
  Receive Date: 20110404
  Receipt Date: 20110321
  Transmission Date: 20111010
  Serious: Yes (Hospitalization, Other)
  Sender: FDA-Public Use
  Company Number: PHHY2011US23075

PATIENT
  Sex: Female

DRUGS (6)
  1. TEKTURNA [Suspect]
     Dosage: 300 MG, QD
  2. TEKTURNA [Suspect]
     Dosage: 150 MG, QD
  3. LISINOPRIL [Suspect]
  4. BENICAR [Suspect]
  5. LECOTHYROXIN [Concomitant]
  6. TEKTURNA HCT [Suspect]
     Dosage: 300 MG, QD

REACTIONS (3)
  - VERTIGO [None]
  - DRUG INEFFECTIVE [None]
  - HYPERTENSION [None]
